FAERS Safety Report 12266882 (Version 1)
Quarter: 2016Q2

REPORT INFORMATION
  Report Type: Spontaneous
  Country: US (occurrence: None)
  Receive Date: 20160413
  Receipt Date: 20160413
  Transmission Date: 20160815
  Serious: Yes (Life-Threatening, Other)
  Sender: FDA-Public Use
  Company Number: None

PATIENT
  Age: 73 Year
  Sex: Male
  Weight: 108.86 kg

DRUGS (12)
  1. POTASSIUM GLUCONATE [Concomitant]
     Active Substance: POTASSIUM GLUCONATE
  2. LAXATIVE - DOCUSATE SODIUM [Concomitant]
  3. MAGNESIUM W/ZINC [Concomitant]
  4. SENNOSIDES. [Concomitant]
     Active Substance: SENNOSIDES
  5. ONE-A-DAY MULTIVITAMIN FOR MEN OVER 50 [Concomitant]
  6. VITAMIN B-COMPLEX [Concomitant]
     Active Substance: DEXPANTHENOL\NIACINAMIDE\PYRIDOXINE HYDROCHLORIDE\RIBOFLAVIN 5^-PHOSPHATE SODIUM\THIAMINE HYDROCHLORIDE
  7. AMLODIPINE BESYLATE. [Suspect]
     Active Substance: AMLODIPINE BESYLATE
     Indication: HYPERTENSION
     Route: 048
     Dates: start: 20160301, end: 20160323
  8. TANSULOSIN (FLOMAX) [Concomitant]
  9. OSTEO BI-FLEX - MSM FORMULA [Concomitant]
  10. ISOSORBIDE MONO ER [Concomitant]
  11. NITROGLYCERINE [Concomitant]
     Active Substance: NITROGLYCERIN
  12. STOOL SOFTENER + STIMULANT [Concomitant]

REACTIONS (2)
  - Product substitution issue [None]
  - Drug ineffective [None]

NARRATIVE: CASE EVENT DATE: 20160315
